FAERS Safety Report 5094448-2 (Version None)
Quarter: 2006Q3

REPORT INFORMATION
  Report Type: 
  Country: None (occurrence: None)
  Receive Date: 20060828
  Receipt Date: 20060823
  Transmission Date: 20061208
  Serious: Yes (Other)
  Sender: FDA-Public Use
  Company Number: GBWYE778224AUG06

PATIENT
  Age: 20 Year
  Sex: Female

DRUGS (4)
  1. RAPAMUNE [Suspect]
     Indication: IMMUNOSUPPRESSION
     Dosage: 1MG
     Dates: start: 20051201, end: 20060501
  2. RAPAMUNE [Suspect]
     Indication: IMMUNOSUPPRESSION
     Dosage: 1MG
     Dates: start: 20060501
  3. IMPLANON [Suspect]
     Indication: CONTRACEPTION
  4. MYCOPHENOLIC ACID [Suspect]
     Indication: IMMUNOSUPPRESSION

REACTIONS (3)
  - BLOOD CREATININE INCREASED [None]
  - DRUG INTERACTION [None]
  - RENAL IMPAIRMENT [None]
